FAERS Safety Report 25080053 (Version 1)
Quarter: 2025Q1

REPORT INFORMATION
  Report Type: Spontaneous
  Country: US (occurrence: US)
  Receive Date: 20250314
  Receipt Date: 20250314
  Transmission Date: 20250409
  Serious: No
  Sender: CALLIDITAS THERAPEUTICS AB
  Company Number: US-Calliditas-2025CAL00652

PATIENT
  Age: 52 Year
  Sex: Female

DRUGS (11)
  1. TARPEYO [Suspect]
     Active Substance: BUDESONIDE
     Indication: IgA nephropathy
     Route: 048
     Dates: start: 20250302
  2. ONDANSETRON [Concomitant]
     Active Substance: ONDANSETRON
  3. JARDIANCE [Concomitant]
     Active Substance: EMPAGLIFLOZIN
  4. ALLEGRA [Concomitant]
     Active Substance: FEXOFENADINE HYDROCHLORIDE
  5. ATORVASTATIN [Concomitant]
     Active Substance: ATORVASTATIN
  6. LYRICA [Concomitant]
     Active Substance: PREGABALIN
  7. VASCEPA [Concomitant]
     Active Substance: ICOSAPENT ETHYL
  8. MONTELUKAST [Concomitant]
     Active Substance: MONTELUKAST
  9. HYDROXYCHLOROQUINE [Concomitant]
     Active Substance: HYDROXYCHLOROQUINE
  10. METFORMIN HYDROCHLORIDE [Concomitant]
     Active Substance: METFORMIN HYDROCHLORIDE
  11. TELMISARTAN [Concomitant]
     Active Substance: TELMISARTAN

REACTIONS (2)
  - Intentional underdose [Recovered/Resolved]
  - Abdominal discomfort [Unknown]

NARRATIVE: CASE EVENT DATE: 20250302
